FAERS Safety Report 7370627-6 (Version None)
Quarter: 2011Q1

REPORT INFORMATION
  Report Type: 
  Country: None (occurrence: None)
  Receive Date: 20110323
  Receipt Date: 20110316
  Transmission Date: 20110831
  Serious: Yes (Other)
  Sender: FDA-Public Use
  Company Number: US-RB-023662-11

PATIENT
  Age: 65 Year
  Sex: Male

DRUGS (2)
  1. SUBOXONE [Suspect]
     Indication: PRODUCT USED FOR UNKNOWN INDICATION
     Dosage: SUBLINGUAL FILM- DOSING INFORMATION UNKNOWN
     Route: 065
  2. SUBOXONE [Suspect]
     Indication: PRODUCT USED FOR UNKNOWN INDICATION
     Dosage: DOSING DETAILS UNKNOWN
     Route: 065

REACTIONS (8)
  - HYPERHIDROSIS [None]
  - PRECANCEROUS SKIN LESION [None]
  - PARANOIA [None]
  - MOOD ALTERED [None]
  - DYSPNOEA [None]
  - NERVOUSNESS [None]
  - PAIN [None]
  - DEPRESSION [None]
